FAERS Safety Report 20025556 (Version 1)
Quarter: 2021Q4

REPORT INFORMATION
  Report Type: Spontaneous
  Country: DE (occurrence: DE)
  Receive Date: 20211102
  Receipt Date: 20211102
  Transmission Date: 20220303
  Serious: Yes (Hospitalization)
  Sender: FDA-Public Use
  Company Number: DE-GE HEALTHCARE-2021CSU005430

PATIENT

DRUGS (3)
  1. IOHEXOL [Suspect]
     Active Substance: IOHEXOL
     Indication: Catheterisation cardiac
     Dosage: 67 ML, SINGLE
     Route: 013
     Dates: start: 20210929, end: 20210929
  2. IOHEXOL [Suspect]
     Active Substance: IOHEXOL
     Indication: Coronary artery disease
  3. CARBAMAZEPINE [Concomitant]
     Active Substance: CARBAMAZEPINE
     Indication: Trigeminal neuralgia
     Dosage: 50 MG
     Route: 048

REACTIONS (1)
  - Diplopia [Recovered/Resolved]

NARRATIVE: CASE EVENT DATE: 20210929
